FAERS Safety Report 6633311-X (Version None)
Quarter: 2010Q1

REPORT INFORMATION
  Report Type: 
  Country: None (occurrence: None)
  Receive Date: 20100312
  Receipt Date: 20100301
  Transmission Date: 20100710
  Serious: Yes (Congenital Anomaly, Other)
  Sender: FDA-Public Use
  Company Number: ZA-PFIZER INC-2010025718

PATIENT
  Age: 3 Year
  Sex: Male

DRUGS (1)
  1. ZOLOFT [Suspect]
     Indication: DEPRESSION
     Route: 064

REACTIONS (3)
  - CAESAREAN SECTION [None]
  - DEXTROCARDIA [None]
  - DRUG EXPOSURE DURING PREGNANCY [None]
